FAERS Safety Report 18293520 (Version 1)
Quarter: 2020Q3

REPORT INFORMATION
  Report Type: Other
  Country: US (occurrence: US)
  Receive Date: 20200921
  Receipt Date: 20200921
  Transmission Date: 20201103
  Serious: No
  Sender: FDA-Public Use
  Company Number: US-ACORDA-ACO_165704_2020

PATIENT
  Sex: Female

DRUGS (2)
  1. NOURIANZ [Suspect]
     Active Substance: ISTRADEFYLLINE
     Indication: PRODUCT USED FOR UNKNOWN INDICATION
     Dosage: 20 MILLIGRAM, QD
     Route: 065
  2. INBRIJA [Suspect]
     Active Substance: LEVODOPA
     Indication: PARKINSON^S DISEASE
     Dosage: 42 MILLIGRAM
     Route: 065
     Dates: start: 20190520, end: 20200724

REACTIONS (6)
  - Dystonia [Unknown]
  - Dyspnoea [Unknown]
  - Posture abnormal [None]
  - Therapeutic product effect decreased [Unknown]
  - Insomnia [Unknown]
  - Constipation [Unknown]
